FAERS Safety Report 5928064-4 (Version None)
Quarter: 2008Q4

REPORT INFORMATION
  Report Type: 
  Country: None (occurrence: None)
  Receive Date: 20081023
  Receipt Date: 20081017
  Transmission Date: 20090506
  Serious: Yes (Hospitalization)
  Sender: FDA-Public Use
  Company Number: A0753212A

PATIENT
  Age: 62 Year
  Sex: Male
  Weight: 88.6 kg

DRUGS (3)
  1. AVANDIA [Suspect]
     Dosage: 2MG TWICE PER DAY
     Route: 048
     Dates: start: 20041001, end: 20051201
  2. REGULAR INSULIN [Concomitant]
  3. TEMAZEPAM [Concomitant]

REACTIONS (1)
  - MYOCARDIAL INFARCTION [None]
